FAERS Safety Report 10375633 (Version 1)
Quarter: 2014Q3

REPORT INFORMATION
  Report Type: Spontaneous
  Country: US (occurrence: US)
  Receive Date: 20140811
  Receipt Date: 20140811
  Transmission Date: 20150326
  Serious: No
  Sender: FDA-Public Use
  Company Number: US-GLAXOSMITHKLINE-A1065274A

PATIENT
  Age: 35 Year
  Sex: Female

DRUGS (1)
  1. REQUIP XL [Suspect]
     Active Substance: ROPINIROLE HYDROCHLORIDE
     Indication: MULTIPLE SCLEROSIS
     Dosage: 2MG AT NIGHT
     Route: 065
     Dates: start: 20120216

REACTIONS (1)
  - Drug administration error [Unknown]
